FAERS Safety Report 12178199 (Version 1)
Quarter: 2016Q1

REPORT INFORMATION
  Report Type: Spontaneous
  Country: US (occurrence: US)
  Receive Date: 20160314
  Receipt Date: 20160314
  Transmission Date: 20160526
  Serious: No
  Sender: FDA-Public Use
  Company Number: US-SA-2015SA202427

PATIENT
  Age: 58 Year
  Sex: Male

DRUGS (13)
  1. XANAX [Concomitant]
     Active Substance: ALPRAZOLAM
  2. TOUJEO [Suspect]
     Active Substance: INSULIN GLARGINE
     Indication: TYPE 1 DIABETES MELLITUS
     Dosage: DOSE:34 UNIT(S)
     Route: 065
     Dates: start: 20151127
  3. GABAPENTIN. [Concomitant]
     Active Substance: GABAPENTIN
  4. COLACE [Concomitant]
     Active Substance: DOCUSATE SODIUM
  5. VITAMINS [Concomitant]
     Active Substance: VITAMINS
  6. APIDRA [Concomitant]
     Active Substance: INSULIN GLULISINE
     Dosage: INJECTED 4-5 UNITS EXTRA APIDRA
     Dates: start: 20151128
  7. SOLOSTAR [Concomitant]
     Active Substance: DEVICE
     Dates: start: 20151127
  8. APIDRA [Concomitant]
     Active Substance: INSULIN GLULISINE
     Dosage: DOSE:12 UNIT(S)
     Dates: start: 20151127
  9. OMEPRAZOLE. [Concomitant]
     Active Substance: OMEPRAZOLE
  10. APIDRA [Concomitant]
     Active Substance: INSULIN GLULISINE
     Dosage: INJECTED 4-5 UNITS EXTRA APIDRA
     Dates: start: 20151129
  11. APIDRA [Concomitant]
     Active Substance: INSULIN GLULISINE
     Dosage: INJECTED 4-5 UNITS EXTRA APIDRA DOSE:70 UNIT(S)
  12. GEMFIBROZIL. [Concomitant]
     Active Substance: GEMFIBROZIL
  13. APIDRA [Concomitant]
     Active Substance: INSULIN GLULISINE
     Dosage: INJECTED 4-5 UNITS EXTRA APIDRA

REACTIONS (1)
  - Blood glucose increased [Unknown]
